FAERS Safety Report 22023748 (Version 1)
Quarter: 2023Q1

REPORT INFORMATION
  Report Type: Spontaneous
  Country: US (occurrence: None)
  Receive Date: 20230223
  Receipt Date: 20230223
  Transmission Date: 20230418
  Serious: Yes (Other)
  Sender: FDA-Public Use
  Company Number: US-ROCHE-3290681

PATIENT
  Sex: Male

DRUGS (1)
  1. HEMLIBRA [Suspect]
     Active Substance: EMICIZUMAB-KXWH
     Indication: Factor VIII deficiency
     Dosage: 600 MG EVERY OTHER WEEK, 150 MG/ML
     Route: 058
     Dates: start: 202107

REACTIONS (2)
  - Haemorrhage [Unknown]
  - Muscle haemorrhage [Unknown]
